FAERS Safety Report 7323053-X (Version None)
Quarter: 2011Q1

REPORT INFORMATION
  Report Type: 
  Country: None (occurrence: None)
  Receive Date: 20110217
  Receipt Date: 20110205
  Transmission Date: 20110831
  Serious: Yes (Other)
  Sender: FDA-Public Use
  Company Number: 2011AP000210

PATIENT
  Sex: Female

DRUGS (2)
  1. FLUOXETINE HCL [Suspect]
     Indication: OBSESSIVE-COMPULSIVE DISORDER
     Dosage: 20 MG;AM
  2. ALPRAZOLAM [Suspect]
     Indication: OBSESSIVE-COMPULSIVE DISORDER
     Dosage: 0.25 MG;TID ; 0.125 MG;TID

REACTIONS (4)
  - DRUG INTERACTION [None]
  - SUICIDAL IDEATION [None]
  - SOMNOLENCE [None]
  - PANIC REACTION [None]
